FAERS Safety Report 7719512-8 (Version None)
Quarter: 2011Q3

REPORT INFORMATION
  Report Type: 
  Country: None (occurrence: None)
  Receive Date: 20110830
  Receipt Date: 20110826
  Transmission Date: 20111222
  Serious: Yes (Hospitalization, Other)
  Sender: FDA-Public Use
  Company Number: IE-AMGEN-IRLSP2011044165

PATIENT
  Age: 62 Year
  Sex: Female

DRUGS (8)
  1. LOSEC                              /00661201/ [Concomitant]
  2. LACTULOSE [Concomitant]
  3. XANAX [Concomitant]
  4. NEULASTA [Suspect]
     Indication: CHEMOTHERAPY
     Dosage: 6 MG, Q3WK
     Route: 058
     Dates: start: 20110805
  5. VALOID                             /00014902/ [Concomitant]
  6. ZOFRAN [Concomitant]
  7. DEXAMETHASONE [Concomitant]
  8. ANTINEOPLASTIC AGENTS [Concomitant]

REACTIONS (2)
  - ARTHRALGIA [None]
  - MALAISE [None]
